FAERS Safety Report 12105322 (Version 1)
Quarter: 2016Q1

REPORT INFORMATION
  Report Type: Spontaneous
  Country: US (occurrence: US)
  Receive Date: 20160223
  Receipt Date: 20160223
  Transmission Date: 20160526
  Serious: Yes (Other)
  Sender: FDA-Public Use
  Company Number: US-PFIZER INC-2016084947

PATIENT
  Age: 39 Year
  Sex: Female
  Weight: 149 kg

DRUGS (3)
  1. LYRICA [Suspect]
     Active Substance: PREGABALIN
     Indication: NEURALGIA
  2. LYRICA [Suspect]
     Active Substance: PREGABALIN
     Indication: INTERVERTEBRAL DISC DEGENERATION
     Dosage: 25 MG, 1X/DAY
     Dates: start: 2015
  3. LYRICA [Suspect]
     Active Substance: PREGABALIN
     Indication: SPINE MALFORMATION
     Dosage: 25 MG, 2X/DAY

REACTIONS (2)
  - Dyskinesia [Unknown]
  - Pain [Unknown]

NARRATIVE: CASE EVENT DATE: 201601
